FAERS Safety Report 20829837 (Version 27)
Quarter: 2024Q4

REPORT INFORMATION
  Report Type: Report from Study
  Country: DE (occurrence: DE)
  Receive Date: 20220513
  Receipt Date: 20241206
  Transmission Date: 20250114
  Serious: Yes (Hospitalization)
  Sender: ROCHE
  Company Number: DE-ROCHE-2188577

PATIENT
  Age: 48 Year
  Sex: Female
  Weight: 128 kg

DRUGS (12)
  1. OCREVUS [Suspect]
     Active Substance: OCRELIZUMAB
     Indication: Relapsing-remitting multiple sclerosis
     Dosage: ON 29-JUL-2024, SHE RECEIVED HER OCREVUS INFUSION.
     Route: 042
     Dates: start: 20151101
  2. OCREVUS [Suspect]
     Active Substance: OCRELIZUMAB
     Route: 042
     Dates: start: 201805
  3. OCREVUS [Suspect]
     Active Substance: OCRELIZUMAB
     Route: 042
     Dates: start: 20181023
  4. OCREVUS [Suspect]
     Active Substance: OCRELIZUMAB
     Route: 042
     Dates: start: 20200514
  5. CORTISONE [Suspect]
     Active Substance: CORTISONE
     Indication: Premedication
     Route: 065
  6. RAMIPRIL [Concomitant]
     Active Substance: RAMIPRIL
  7. RAMIPRIL [Concomitant]
     Active Substance: RAMIPRIL
     Dosage: 7.5 MG - 0 - 2.5 MG
  8. MIRABEGRON [Concomitant]
     Active Substance: MIRABEGRON
  9. ASPIRIN [Concomitant]
     Active Substance: ASPIRIN
  10. LERCANIDIPINE [Concomitant]
     Active Substance: LERCANIDIPINE
     Dosage: 1-0-0
  11. HYGROTON [Concomitant]
     Active Substance: CHLORTHALIDONE
  12. LOPERAMIDE [Concomitant]
     Active Substance: LOPERAMIDE
     Dosage: AS NEEDED

REACTIONS (27)
  - Gastritis [Recovering/Resolving]
  - Hepatomegaly [Recovered/Resolved]
  - Hepatic steatosis [Not Recovered/Not Resolved]
  - Dental restoration failure [Recovered/Resolved]
  - Weight increased [Not Recovered/Not Resolved]
  - Gamma-glutamyltransferase increased [Recovering/Resolving]
  - Blood potassium increased [Recovered/Resolved]
  - Gastrointestinal disorder [Recovered/Resolved]
  - Micturition urgency [Recovered/Resolved]
  - Headache [Recovered/Resolved]
  - COVID-19 [Recovered/Resolved]
  - Influenza like illness [Recovered/Resolved]
  - Blood pressure increased [Recovered/Resolved]
  - Cough [Recovered/Resolved]
  - Fatigue [Recovered/Resolved]
  - Nasopharyngitis [Recovered/Resolved]
  - Blood pressure increased [Recovered/Resolved]
  - Anogenital warts [Not Recovered/Not Resolved]
  - Diarrhoea [Recovered/Resolved]
  - Amnesia [Recovered/Resolved]
  - Liver function test increased [Not Recovered/Not Resolved]
  - Visual acuity reduced [Recovered/Resolved]
  - Memory impairment [Recovered/Resolved]
  - Disturbance in attention [Recovered/Resolved]
  - Anogenital warts [Not Recovered/Not Resolved]
  - Abdominal pain upper [Recovered/Resolved]
  - Diarrhoea [Recovering/Resolving]

NARRATIVE: CASE EVENT DATE: 20190210
